FAERS Safety Report 5313692-X (Version None)
Quarter: 2007Q2

REPORT INFORMATION
  Report Type: 
  Country: None (occurrence: None)
  Receive Date: 20070430
  Receipt Date: 20070430
  Transmission Date: 20071010
  Serious: No
  Sender: FDA-Public Use
  Company Number: None

PATIENT
  Age: 2 Year
  Sex: Female

DRUGS (1)
  1. SODIUM CHLORIDE [Suspect]
     Dosage: CONCENTRATE

REACTIONS (6)
  - BRAIN OEDEMA [None]
  - COMA [None]
  - DRUG DISPENSING ERROR [None]
  - HEADACHE [None]
  - MEDICATION ERROR [None]
  - SCREAMING [None]
